FAERS Safety Report 4558995-1 (Version None)
Quarter: 2005Q1

REPORT INFORMATION
  Report Type: 
  Country: None (occurrence: None)
  Receive Date: 20050124
  Receipt Date: 20050112
  Transmission Date: 20050727
  Serious: Yes (Other)
  Sender: FDA-Public Use
  Company Number: PHBS2005BR00843

PATIENT
  Age: 64 Year
  Sex: Male

DRUGS (3)
  1. RIMACTANE [Suspect]
     Dates: start: 20031001
  2. DAPSONE [Suspect]
     Dates: start: 20031001
  3. LAMPRENE [Suspect]
     Dosage: 5 CAPSULES/DAY
     Route: 048
     Dates: start: 20031001

REACTIONS (4)
  - ANOREXIA [None]
  - SKIN DISCOLOURATION [None]
  - SKIN NODULE [None]
  - SYNCOPE [None]
